FAERS Safety Report 9944085 (Version 15)
Quarter: 2017Q2

REPORT INFORMATION
  Report Type: Spontaneous
  Country: CA (occurrence: CA)
  Receive Date: 20140303
  Receipt Date: 20170626
  Transmission Date: 20170830
  Serious: Yes (Hospitalization, Other)
  Sender: FDA-Public Use
  Company Number: CA-PFIZER INC-2014058303

PATIENT
  Age: 64 Year
  Sex: Male

DRUGS (35)
  1. SOMAVERT [Suspect]
     Active Substance: PEGVISOMANT
     Indication: ACROMEGALY
     Dosage: 10 MG, 1X/DAY
     Route: 058
     Dates: start: 20131024, end: 20140324
  2. SOMAVERT [Suspect]
     Active Substance: PEGVISOMANT
     Dosage: 10 MG, 1X/DAY
     Route: 058
     Dates: start: 201410
  3. MONTELUKAST [Concomitant]
     Active Substance: MONTELUKAST SODIUM
     Dosage: 10 MG, 1X/DAY IN THE EVENING
     Dates: end: 201402
  4. SWISS MULTIVITAMIN 50+ [Concomitant]
     Dosage: 1/2 TABLET, 2X/DAY IN THE MORNING AND AFTER DINNER
  5. CYMBALTA [Concomitant]
     Active Substance: DULOXETINE HYDROCHLORIDE
     Dosage: 30 MG, 1X/DAY IN THE MORNING
     Route: 048
  6. APO-TIZANIDINE HYDROCHLORIDE [Concomitant]
     Dosage: 8 MG (2 X 4 MG), 1X/DAY IN THE EVENING
  7. RESTASIS [Concomitant]
     Active Substance: CYCLOSPORINE
     Dosage: 0.05 %, 3X/DAY (EVERY 8 HOURS)
     Route: 047
  8. SOMATULINE [Concomitant]
     Active Substance: LANREOTIDE ACETATE
     Dosage: 120 MG, EVERY 28 DAYS
     Route: 030
     Dates: end: 20170519
  9. CYMBALTA [Concomitant]
     Active Substance: DULOXETINE HYDROCHLORIDE
     Dosage: 90 MG, DAILY
     Route: 048
  10. WELLBUTRIN SR [Concomitant]
     Active Substance: BUPROPION HYDROCHLORIDE
     Dosage: 200 MG, 1X/DAY IN THE MORNING
     Route: 048
  11. ELAVIL [Concomitant]
     Active Substance: AMITRIPTYLINE HYDROCHLORIDE
     Dosage: 25 MG, 1X/DAY IN THE EVENING
  12. VITALUX-S [Concomitant]
     Indication: MACULAR DEGENERATION
     Dosage: 1 DF, 2X/DAY
  13. NOVO-MELOXICAM [Concomitant]
     Dosage: 7.5 MG, AS NEEDED (DAILY)
     Route: 048
  14. APO-HYDRO [Concomitant]
     Active Substance: HYDROCHLOROTHIAZIDE
     Dosage: 25 MG, 1X/DAY IN THE AFTERNOON
  15. VITAMIN D [Concomitant]
     Active Substance: CHOLECALCIFEROL
     Dosage: 1000 IU, 1X/DAY AFTER DINNER
  16. REACTINE [Concomitant]
     Active Substance: CETIRIZINE HYDROCHLORIDE
     Indication: NASAL OPERATION
     Dosage: 10 MG, AS NEEDED (DAILY IN THE MORNING)
     Route: 048
  17. AVODART [Concomitant]
     Active Substance: DUTASTERIDE
     Dosage: 0.5 MG, 1X/DAY IN THE MORNING
     Route: 048
  18. PULMICORT TURBUHALER [Concomitant]
     Active Substance: BUDESONIDE
     Dosage: 0.5 ML MIXED 2 ML WITH 100 ML DISTILLED WATER, ONCE DAILY
     Route: 045
  19. PULMICORT TURBUHALER [Concomitant]
     Active Substance: BUDESONIDE
     Dosage: 0.5 ML, AS NEEDED
     Route: 045
     Dates: end: 201402
  20. TYLENOL ARTHRITIS PAIN [Concomitant]
     Active Substance: ACETAMINOPHEN
     Dosage: 1300 MG (650 MG X 2 IN THE MORNING AND AT 2 PM), 2X/DAY
  21. SOMAVERT [Suspect]
     Active Substance: PEGVISOMANT
     Dosage: 10 MG, 1X/DAY
     Route: 058
     Dates: start: 20140615, end: 20140701
  22. DULOXETINE. [Concomitant]
     Active Substance: DULOXETINE
     Dosage: 60 MG, 1X/DAY IN THE MORNING
  23. SDZ-BUPROPION [Concomitant]
     Dosage: UNK, EVERY MORNING
  24. APO-ESOMEPRAZOLE MAGNESIUM [Concomitant]
     Indication: GASTROOESOPHAGEAL REFLUX DISEASE
     Dosage: 40 MG, AS NEEDED (DAILY IN THE AFTERNOON)
     Route: 048
  25. PMS-CLONAZEPAM [Concomitant]
     Active Substance: CLONAZEPAM
     Dosage: 1 MG, AS NEEDED (PER NIGHT)
     Route: 048
  26. SOMAVERT [Suspect]
     Active Substance: PEGVISOMANT
     Dosage: 15 MG, 1X/DAY
     Route: 058
     Dates: end: 20150116
  27. REACTINE [Concomitant]
     Active Substance: CETIRIZINE HYDROCHLORIDE
     Indication: HYPERSENSITIVITY
  28. CYMBALTA [Concomitant]
     Active Substance: DULOXETINE HYDROCHLORIDE
     Dosage: 120 MG, 1X/DAY IN MORNING
     Route: 048
  29. ASA ENTERIC COATED [Concomitant]
     Dosage: 81 MG, 1X/DAY IN THE MORNING
     Route: 048
  30. SDZ-VALSARTAN [Concomitant]
     Dosage: 160 MG, 1X/DAY
     Route: 048
  31. TIAZAC XC [Concomitant]
     Active Substance: DILTIAZEM HYDROCHLORIDE
     Dosage: 120 MG, DAILY IN THE EVENING
     Route: 048
  32. PMS-CLONAZEPAM [Concomitant]
     Active Substance: CLONAZEPAM
     Dosage: 1.5 MG (3 X 0.5 MG PER NIGHT), 1X/DAY
     Route: 048
  33. OMEGA PLUS 3 [Concomitant]
     Dosage: 1000 MG, 1X/DAY MORNING
     Route: 048
  34. NEILMED SINUS RINSE [Concomitant]
     Active Substance: SODIUM BICARBONATE\SODIUM CHLORIDE
     Dosage: 100 ML (50 ML PER SIDE), 1X/DAY IN THE MORNING
     Route: 045
  35. RESTASIS [Concomitant]
     Active Substance: CYCLOSPORINE
     Dosage: 0.05 %, 2X/DAY (2 DROPS IN EACH EYE)
     Route: 047

REACTIONS (21)
  - Arthralgia [Recovered/Resolved]
  - Malaise [Recovered/Resolved]
  - Macular degeneration [Not Recovered/Not Resolved]
  - Arthritis [Not Recovered/Not Resolved]
  - Hyperhidrosis [Not Recovered/Not Resolved]
  - Chest pain [Recovered/Resolved]
  - Arthropathy [Recovered/Resolved]
  - Incision site complication [Not Recovered/Not Resolved]
  - Headache [Recovered/Resolved]
  - Joint swelling [Not Recovered/Not Resolved]
  - Abdominal pain [Recovered/Resolved]
  - Lethargy [Recovered/Resolved]
  - Blood pressure fluctuation [Recovered/Resolved]
  - Sleep disorder [Not Recovered/Not Resolved]
  - Carpal tunnel syndrome [Recovered/Resolved]
  - Asthenia [Not Recovered/Not Resolved]
  - Hypoacusis [Not Recovered/Not Resolved]
  - Pain [Not Recovered/Not Resolved]
  - Post procedural haemorrhage [Recovered/Resolved]
  - Nausea [Recovered/Resolved]
  - Depressed mood [Not Recovered/Not Resolved]

NARRATIVE: CASE EVENT DATE: 2014
